FAERS Safety Report 9006330 (Version 1)
Quarter: 2012Q4

REPORT INFORMATION
  Report Type: Spontaneous
  Country: DK (occurrence: None)
  Receive Date: 20121227
  Receipt Date: 20121227
  Transmission Date: 20130627
  Serious: Yes (Other)
  Sender: FDA-Public Use
  Company Number: 2012MA014220

PATIENT
  Age: 23 Year
  Sex: Male

DRUGS (2)
  1. TRAMADOL HYDROCHLORIDE TABLETS, 50 MG (PUREPAC) (TRAMADOL) [Suspect]
     Indication: BACK PAIN
     Route: 048
     Dates: start: 20121116, end: 20121120
  2. NAPROXEN [Concomitant]

REACTIONS (4)
  - Insomnia [None]
  - Contusion [None]
  - Dyskinesia [None]
  - Sleep attacks [None]
